FAERS Safety Report 5209138-2 (Version None)
Quarter: 2007Q1

REPORT INFORMATION
  Report Type: 
  Country: None (occurrence: None)
  Receive Date: 20070116
  Receipt Date: 20061215
  Transmission Date: 20070707
  Serious: Yes (Hospitalization)
  Sender: FDA-Public Use
  Company Number: GB-MERCK-0611GBR00052

PATIENT
  Age: 10 Year
  Sex: Male

DRUGS (6)
  1. SINGULAIR [Suspect]
     Indication: EXERCISE ADEQUATE
     Route: 048
     Dates: start: 20061102, end: 20061102
  2. SINGULAIR [Suspect]
     Indication: ASTHMA
     Route: 048
     Dates: start: 20061102, end: 20061102
  3. POLYETHYLENE GLYCOL 3350 AND POTASSIUM CHLORIDE AND SODIUM BICARBONATE [Concomitant]
     Indication: CONSTIPATION
     Route: 065
  4. FLUTICASONE PROPIONATE AND SALMETEROL XINAFOATE [Concomitant]
     Indication: ASTHMA
     Dates: start: 20060329
  5. SALMETEROL XINAFOATE [Concomitant]
     Indication: ASTHMA
     Dates: start: 20060329
  6. ALBUTEROL [Concomitant]
     Dates: start: 19970101

REACTIONS (2)
  - CONVULSION [None]
  - SYNCOPE VASOVAGAL [None]
